FAERS Safety Report 24532788 (Version 2)
Quarter: 2024Q4

REPORT INFORMATION
  Report Type: Spontaneous
  Country: JP (occurrence: JP)
  Receive Date: 20241022
  Receipt Date: 20241104
  Transmission Date: 20250114
  Serious: Yes (Other)
  Sender: PFIZER
  Company Number: JP-PFIZER INC-PV202400135314

PATIENT
  Age: 82 Year
  Sex: Male

DRUGS (1)
  1. MEROPENEM [Suspect]
     Active Substance: MEROPENEM
     Indication: Diverticulitis
     Dosage: UNK
     Route: 041

REACTIONS (2)
  - Tubulointerstitial nephritis [Unknown]
  - Vasculitis necrotising [Unknown]
